FAERS Safety Report 6574486-0 (Version None)
Quarter: 2010Q1

REPORT INFORMATION
  Report Type: 
  Country: None (occurrence: None)
  Receive Date: 20100209
  Receipt Date: 20090922
  Transmission Date: 20100710
  Serious: No
  Sender: FDA-Public Use
  Company Number: A0808458A

PATIENT
  Age: 52 Year
  Sex: Female

DRUGS (2)
  1. PAXIL [Suspect]
     Dosage: 20MG PER DAY
     Route: 048
     Dates: start: 20090918, end: 20090921
  2. NO CONCURRENT MEDICATION [Concomitant]

REACTIONS (1)
  - ADVERSE EVENT [None]
